FAERS Safety Report 25094611 (Version 1)
Quarter: 2025Q1

REPORT INFORMATION
  Report Type: Spontaneous
  Country: US (occurrence: US)
  Receive Date: 20250319
  Receipt Date: 20250319
  Transmission Date: 20250408
  Serious: No
  Sender: SANOFI AVENTIS
  Company Number: US-SA-2025SA079528

PATIENT
  Sex: Female
  Weight: 89 kg

DRUGS (4)
  1. DUPIXENT [Suspect]
     Active Substance: DUPILUMAB
     Indication: Dermatitis atopic
     Route: 058
  2. DUPIXENT [Suspect]
     Active Substance: DUPILUMAB
     Dosage: 300 MG, QOW
     Route: 058
  3. MELOXICAM [Concomitant]
     Active Substance: MELOXICAM
  4. WELLBUTRIN XL [Concomitant]
     Active Substance: BUPROPION HYDROCHLORIDE

REACTIONS (1)
  - Eye disorder [Unknown]
